FAERS Safety Report 4794874-2 (Version None)
Quarter: 2005Q4

REPORT INFORMATION
  Report Type: 
  Country: None (occurrence: None)
  Receive Date: 20051012
  Receipt Date: 20050714
  Transmission Date: 20060501
  Serious: Yes (Hospitalization, Other)
  Sender: FDA-Public Use
  Company Number: US-SP-2005-01360

PATIENT
  Age: 18 Year
  Sex: Male

DRUGS (2)
  1. MENACTRA [Suspect]
     Indication: IMMUNISATION
     Route: 030
     Dates: start: 20050610
  2. TUBERSOL [Suspect]
     Indication: TUBERCULIN TEST
     Route: 023
     Dates: start: 20050610

REACTIONS (10)
  - AREFLEXIA [None]
  - ASTHENIA [None]
  - DIFFICULTY IN WALKING [None]
  - DYSARTHRIA [None]
  - FACIAL PARESIS [None]
  - GUILLAIN-BARRE SYNDROME [None]
  - NECK PAIN [None]
  - PARAESTHESIA [None]
  - SENSATION OF HEAVINESS [None]
  - SENSORY DISTURBANCE [None]
